FAERS Safety Report 7257631-3 (Version None)
Quarter: 2011Q1

REPORT INFORMATION
  Report Type: 
  Country: None (occurrence: None)
  Receive Date: 20110129
  Receipt Date: 20100520
  Transmission Date: 20110831
  Serious: No
  Sender: FDA-Public Use
  Company Number: US-ABBOTT-10P-163-0646793-00

PATIENT
  Sex: Female
  Weight: 59.02 kg

DRUGS (3)
  1. HUMIRA [Suspect]
     Indication: PSORIASIS
     Route: 058
     Dates: start: 20080101, end: 20090101
  2. HUMIRA [Suspect]
     Indication: PSORIATIC ARTHROPATHY
     Route: 058
     Dates: start: 20090901
  3. WELLBUTRIN [Concomitant]

REACTIONS (5)
  - INJECTION SITE HAEMORRHAGE [None]
  - INCORRECT DOSE ADMINISTERED [None]
  - NEEDLE ISSUE [None]
  - LACERATION [None]
  - DEVICE MALFUNCTION [None]
